FAERS Safety Report 10376792 (Version 1)
Quarter: 2014Q3

REPORT INFORMATION
  Report Type: Spontaneous
  Country: US (occurrence: DE)
  Receive Date: 20140811
  Receipt Date: 20140811
  Transmission Date: 20150326
  Serious: Yes (Other)
  Sender: FDA-Public Use
  Company Number: DE-FRI-1000069757

PATIENT
  Sex: Female

DRUGS (1)
  1. ROFLUMILAST [Suspect]
     Active Substance: ROFLUMILAST

REACTIONS (1)
  - Breast cancer [Not Recovered/Not Resolved]

NARRATIVE: CASE EVENT DATE: 2014
